FAERS Safety Report 14918300 (Version 1)
Quarter: 2018Q2

REPORT INFORMATION
  Report Type: Spontaneous
  Country: US (occurrence: US)
  Receive Date: 20180521
  Receipt Date: 20180521
  Transmission Date: 20180711
  Serious: No
  Sender: FDA-Public Use
  Company Number: US-TEVA-814619USA

PATIENT
  Sex: Male

DRUGS (1)
  1. TESTOSTERONE. [Suspect]
     Active Substance: TESTOSTERONE
     Indication: HYPOGONADISM
     Dates: start: 201709

REACTIONS (7)
  - Erectile dysfunction [Unknown]
  - Dysphonia [Unknown]
  - Fatigue [Unknown]
  - Product quality issue [Unknown]
  - Drug ineffective [Unknown]
  - Hair growth rate abnormal [Unknown]
  - Lethargy [Unknown]

NARRATIVE: CASE EVENT DATE: 20171003
